FAERS Safety Report 7330088-X (Version None)
Quarter: 2011Q1

REPORT INFORMATION
  Report Type: 
  Country: None (occurrence: None)
  Receive Date: 20110303
  Receipt Date: 20110221
  Transmission Date: 20110831
  Serious: Yes (Hospitalization, Other)
  Sender: FDA-Public Use
  Company Number: GB-ELI_LILLY_AND_COMPANY-GB201011000401

PATIENT
  Age: 55 Year
  Sex: Female
  Weight: 54 kg

DRUGS (7)
  1. FOLIC ACID [Concomitant]
     Dosage: 400 UG, UNK
     Route: 048
     Dates: start: 20100810, end: 20100924
  2. ALIMTA [Suspect]
     Indication: LUNG ADENOCARCINOMA STAGE IV
     Dosage: 755 MG, UNK
     Route: 042
     Dates: start: 20100817, end: 20100817
  3. VIT B12 [Concomitant]
     Dosage: 1000 UG, UNK
     Route: 030
     Dates: start: 20100810
  4. APREPITANT [Concomitant]
     Dosage: 80 MG, UNK
     Route: 042
     Dates: start: 20100817, end: 20100817
  5. NSAID'S [Concomitant]
     Indication: BACK PAIN
  6. CISPLATIN [Concomitant]
  7. DEXAMETHASONE [Concomitant]
     Dosage: 4 MG, UNK
     Route: 048
     Dates: start: 20100816, end: 20100818

REACTIONS (2)
  - RHABDOMYOLYSIS [None]
  - RENAL FAILURE ACUTE [None]
